FAERS Safety Report 8174102-0 (Version None)
Quarter: 2012Q1

REPORT INFORMATION
  Report Type: 
  Country: None (occurrence: None)
  Receive Date: 20120224
  Receipt Date: 20120216
  Transmission Date: 20120608
  Serious: Yes (Hospitalization)
  Sender: FDA-Public Use
  Company Number: 2012MA002241

PATIENT
  Age: 87 Year
  Sex: Male

DRUGS (1)
  1. METFORMIN HCL [Suspect]
     Indication: PRODUCT USED FOR UNKNOWN INDICATION
     Dosage: 500 MG

REACTIONS (6)
  - HIP FRACTURE [None]
  - FALL [None]
  - CEREBROVASCULAR ACCIDENT [None]
  - DYSPHAGIA [None]
  - VOMITING [None]
  - UNDERDOSE [None]
